FAERS Safety Report 6663188-8 (Version None)
Quarter: 2010Q2

REPORT INFORMATION
  Report Type: 
  Country: None (occurrence: None)
  Receive Date: 20100401
  Receipt Date: 20100322
  Transmission Date: 20101027
  Serious: Yes (Hospitalization, Other)
  Sender: FDA-Public Use
  Company Number: PHHY2010DE17428

PATIENT
  Age: 2 Year
  Sex: Female

DRUGS (3)
  1. CYCLOSPORINE [Suspect]
     Indication: LIVER TRANSPLANT
     Dosage: UNK
  2. BASILIXIMAB [Suspect]
     Indication: LIVER TRANSPLANT
  3. STEROIDS NOS [Suspect]
     Indication: LIVER TRANSPLANT
     Dosage: 300 MG/ M^2

REACTIONS (16)
  - HEPATIC CIRRHOSIS [None]
  - HEPATIC ENZYME INCREASED [None]
  - HEPATIC NECROSIS [None]
  - HUMAN HERPESVIRUS 6 INFECTION [None]
  - INFLAMMATION [None]
  - MECHANICAL VENTILATION [None]
  - PLEURAL EFFUSION [None]
  - PNEUMONITIS [None]
  - PYREXIA [None]
  - RASH [None]
  - RENAL FAILURE [None]
  - RESPIRATORY FAILURE [None]
  - THROMBOCYTOPENIA [None]
  - TRACHEOSTOMY [None]
  - TRACHEOSTOMY MALFUNCTION [None]
  - TRANSPLANT REJECTION [None]
